FAERS Safety Report 12397843 (Version 1)
Quarter: 2016Q2

REPORT INFORMATION
  Report Type: Spontaneous
  Country: US (occurrence: US)
  Receive Date: 20160524
  Receipt Date: 20160524
  Transmission Date: 20160815
  Serious: No
  Sender: FDA-Public Use
  Company Number: US-BAYER-2016-099592

PATIENT
  Age: 49 Year
  Sex: Female
  Weight: 40.36 kg

DRUGS (1)
  1. MIRALAX [Suspect]
     Active Substance: POLYETHYLENE GLYCOL 3350
     Indication: BOWEL MOVEMENT IRREGULARITY
     Dosage: 0.25 DF, PRN TOTAL 4 OR 5 TIMES
     Route: 048
     Dates: start: 201605

REACTIONS (1)
  - Product use issue [None]

NARRATIVE: CASE EVENT DATE: 201605
